FAERS Safety Report 23485021 (Version 2)
Quarter: 2024Q1

REPORT INFORMATION
  Report Type: Spontaneous
  Country: HR (occurrence: HR)
  Receive Date: 20240206
  Receipt Date: 20240221
  Transmission Date: 20240410
  Serious: Yes (Disabling)
  Sender: FDA-Public Use
  Company Number: None

PATIENT
  Age: 63 Year
  Sex: Male
  Weight: 85 kg

DRUGS (1)
  1. TAMSULOSIN HYDROCHLORIDE [Suspect]
     Active Substance: TAMSULOSIN HYDROCHLORIDE
     Indication: Prostatic disorder
     Dosage: 0.4 MG, QD
     Route: 048
     Dates: start: 20200101

REACTIONS (3)
  - Impaired quality of life [Recovered/Resolved with Sequelae]
  - Male sexual dysfunction [Recovered/Resolved with Sequelae]
  - Penis disorder [Recovered/Resolved with Sequelae]

NARRATIVE: CASE EVENT DATE: 20200101
